FAERS Safety Report 5485642-7 (Version None)
Quarter: 2007Q4

REPORT INFORMATION
  Report Type: 
  Country: None (occurrence: None)
  Receive Date: 20071011
  Receipt Date: 20070926
  Transmission Date: 20080405
  Serious: Yes (Death)
  Sender: FDA-Public Use
  Company Number: 2007S1009710

PATIENT
  Age: 23 Year
  Sex: Male

DRUGS (5)
  1. AMITRIPTYLINE HYDROCHLORIDE [Suspect]
  2. MAPROTILINE HYDRCHLORIDE (MAPROTILINE HYDROHCLORIDE) [Suspect]
  3. CLOMIPRAMINE HCL [Suspect]
  4. AMOXAPINE [Suspect]
  5. MILNACIPRAN (MILNACIPRAN) [Suspect]

REACTIONS (6)
  - CARDIO-RESPIRATORY ARREST [None]
  - DRUG TOXICITY [None]
  - HYPERPYREXIA [None]
  - MULTIPLE DRUG OVERDOSE [None]
  - PULMONARY CONGESTION [None]
  - PULMONARY OEDEMA [None]
